FAERS Safety Report 7714617-X (Version None)
Quarter: 2011Q3

REPORT INFORMATION
  Report Type: 
  Country: None (occurrence: None)
  Receive Date: 20110829
  Receipt Date: 20110823
  Transmission Date: 20111222
  Serious: No
  Sender: FDA-Public Use
  Company Number: US-PFIZER INC-US-WYE-H16269610

PATIENT
  Sex: Female
  Weight: 54.9 kg

DRUGS (3)
  1. VITAMIN TAB [Concomitant]
  2. TYLENOL-500 [Concomitant]
  3. PREMPRO [Suspect]
     Indication: MENOPAUSE
     Dosage: 0.625-5 MG DAILY
     Route: 048
     Dates: start: 20100401

REACTIONS (4)
  - FATIGUE [None]
  - POSTMENOPAUSAL HAEMORRHAGE [None]
  - BREAST DISCOMFORT [None]
  - DYSMENORRHOEA [None]
